FAERS Safety Report 8945502 (Version 2)
Quarter: 2012Q4

REPORT INFORMATION
  Report Type: 
  Country: DE (occurrence: DE)
  Receive Date: 20121205
  Receipt Date: 20121227
  Transmission Date: 20130627
  Serious: Yes (Life-Threatening)
  Sender: FDA-Public Use
  Company Number: DE-PFIZER INC-2012303395

PATIENT
  Age: 39 Year
  Sex: Female
  Weight: 44 kg

DRUGS (6)
  1. ARGATRA [Suspect]
     Indication: HEPARIN-INDUCED THROMBOCYTOPENIA TYPE II
     Dosage: 2 ug/kg, 1 min
     Route: 042
     Dates: start: 20121124, end: 20121124
  2. ARGATRA [Suspect]
     Dosage: 1.8 ug/kg,1 min
     Route: 042
     Dates: start: 20121125, end: 20121125
  3. BUSCOPAN [Concomitant]
     Indication: SPASMS
     Dosage: UNK
     Dates: end: 20121125
  4. METOPROLOL [Concomitant]
     Indication: HYPERTENSION
     Dosage: UNK
  5. PANTOPRAZOL [Concomitant]
     Indication: ULCER DUODENAL
     Dosage: UNK
     Dates: end: 20121125
  6. METAMIZOLE SODIUM [Concomitant]
     Indication: PAIN
     Dosage: UNK
     Dates: end: 20121125

REACTIONS (2)
  - Hepatic failure [Recovering/Resolving]
  - Transaminases increased [Unknown]
